FAERS Safety Report 17082223 (Version 1)
Quarter: 2019Q4

REPORT INFORMATION
  Report Type: Report from Study
  Country: RO (occurrence: RO)
  Receive Date: 20191127
  Receipt Date: 20191127
  Transmission Date: 20200122
  Serious: Yes (Hospitalization)
  Sender: FDA-Public Use
  Company Number: RO-CELGENEUS-USA-20191108882

PATIENT
  Age: 67 Year
  Sex: Female
  Weight: 67.46 kg

DRUGS (2)
  1. GLASDEGIB (PF 04449913) [Suspect]
     Active Substance: GLASDEGIB
     Indication: ACUTE MYELOID LEUKAEMIA
     Route: 048
     Dates: start: 20190417, end: 20190514
  2. AZACITIDINE. [Suspect]
     Active Substance: AZACITIDINE
     Indication: ACUTE MYELOID LEUKAEMIA
     Dosage: 125 MILLIGRAM
     Route: 058
     Dates: start: 20190417, end: 20190423

REACTIONS (1)
  - Glossitis [Recovered/Resolved]

NARRATIVE: CASE EVENT DATE: 20190603
